FAERS Safety Report 21305603 (Version 2)
Quarter: 2022Q4

REPORT INFORMATION
  Report Type: Spontaneous
  Country: US (occurrence: US)
  Receive Date: 20220908
  Receipt Date: 20221107
  Transmission Date: 20230112
  Serious: No
  Sender: FDA-Public Use
  Company Number: US-AMGEN-USASP2022154501

PATIENT
  Age: 72 Year
  Sex: Female

DRUGS (1)
  1. AIMOVIG [Suspect]
     Active Substance: ERENUMAB-AOOE
     Indication: Migraine
     Dosage: 70 MILLIGRAM, QMO
     Route: 058
     Dates: start: 202108

REACTIONS (3)
  - Product storage error [Unknown]
  - Intercepted product administration error [Unknown]
  - Constipation [Unknown]

NARRATIVE: CASE EVENT DATE: 20220906
